FAERS Safety Report 8383182 (Version 4)
Quarter: 2012Q4

REPORT INFORMATION
  Report Type: 
  Country: US (occurrence: US)
  Receive Date: 20120130
  Receipt Date: 20121015
  Transmission Date: 20130627
  Serious: Yes (Death)
  Sender: FDA-Public Use
  Company Number: PHEH2012US002190

PATIENT
  Sex: Female
  Weight: 70 kg

DRUGS (1)
  1. ZOMETA [Suspect]

REACTIONS (4)
  - Acute respiratory distress syndrome [Fatal]
  - Pneumonia [Fatal]
  - Hypoxia [Fatal]
  - Respiratory failure [Fatal]
